FAERS Safety Report 6574168-5 (Version None)
Quarter: 2010Q1

REPORT INFORMATION
  Report Type: 
  Country: None (occurrence: None)
  Receive Date: 20100201
  Receipt Date: 20100115
  Transmission Date: 20100710
  Serious: Yes (Other)
  Sender: FDA-Public Use
  Company Number: 1-21314502

PATIENT
  Age: 64 Year
  Sex: Female
  Weight: 57.6068 kg

DRUGS (5)
  1. PHENYTOIN SODIUM [Suspect]
     Indication: CONVULSION
     Dosage: 300 MG DAILY, ORAL
     Route: 048
     Dates: start: 20080101, end: 20100113
  2. UNSPECIFIED PHENYTOIN 30 MG [Suspect]
     Indication: CONVULSION
     Dosage: 90 MG DAILY, ORAL
     Route: 048
     Dates: start: 20080122, end: 20100113
  3. DEPAKOTE [Concomitant]
  4. MYSOLINE [Concomitant]
  5. LAMICTAL [Concomitant]

REACTIONS (9)
  - ATAXIA [None]
  - CONVULSION [None]
  - DIPLOPIA [None]
  - FEELING ABNORMAL [None]
  - OVERDOSE [None]
  - PRODUCT SUBSTITUTION ISSUE [None]
  - SPEECH DISORDER [None]
  - TREMOR [None]
  - UNDERDOSE [None]
